FAERS Safety Report 8837190 (Version 1)
Quarter: 2012Q4

REPORT INFORMATION
  Report Type: 
  Country: IT (occurrence: IT)
  Receive Date: 20121012
  Receipt Date: 20121012
  Transmission Date: 20130627
  Serious: Yes (Other)
  Sender: FDA-Public Use
  Company Number: IT-MYLANLABS-2012S1020438

PATIENT
  Age: 77 Year
  Sex: Male

DRUGS (3)
  1. LOSARTAN [Suspect]
     Indication: HYPERTENSION
     Route: 048
     Dates: start: 20120922, end: 20120925
  2. MANIDIPINA [Concomitant]
     Indication: PRODUCT USED FOR UNKNOWN INDICATION
  3. NIFEDICOR [Concomitant]
     Indication: HYPERTENSIVE CRISIS

REACTIONS (1)
  - Hypertension [Recovering/Resolving]
